FAERS Safety Report 17279331 (Version 5)
Quarter: 2020Q1

REPORT INFORMATION
  Report Type: Spontaneous
  Country: AU (occurrence: AU)
  Receive Date: 20200116
  Receipt Date: 20200317
  Transmission Date: 20200409
  Serious: Yes (Life-Threatening, Disabling, Other)
  Sender: FDA-Public Use
  Company Number: NVSC2020AU008488

PATIENT
  Age: 44 Year
  Sex: Male
  Weight: 72 kg

DRUGS (2)
  1. JADENU [Suspect]
     Active Substance: DEFERASIROX
     Indication: THALASSAEMIA
     Dosage: UNK
     Route: 048
     Dates: start: 201905, end: 201912
  2. JADENU [Suspect]
     Active Substance: DEFERASIROX
     Indication: CHELATION THERAPY

REACTIONS (13)
  - Abdominal distension [Recovered/Resolved]
  - Haemorrhage [Recovered/Resolved]
  - Nephrolithiasis [Recovered/Resolved]
  - Eczema [Recovered/Resolved]
  - Feeling abnormal [Not Recovered/Not Resolved]
  - Urine output increased [Unknown]
  - Chromaturia [Unknown]
  - Dysuria [Unknown]
  - Dehydration [Unknown]
  - Confusional state [Unknown]
  - Pain [Not Recovered/Not Resolved]
  - Micturition urgency [Unknown]
  - Diarrhoea [Recovered/Resolved]

NARRATIVE: CASE EVENT DATE: 201905
